FAERS Safety Report 25910498 (Version 1)
Quarter: 2025Q4

REPORT INFORMATION
  Report Type: Spontaneous
  Country: EU (occurrence: EU)
  Receive Date: 20251012
  Receipt Date: 20251012
  Transmission Date: 20260117
  Serious: Yes (Life-Threatening, Hospitalization, Other)
  Sender: BAXTER
  Company Number: None

PATIENT
  Age: 4 Year
  Sex: Female

DRUGS (64)
  1. CYCLOPHOSPHAMIDE [Suspect]
     Active Substance: CYCLOPHOSPHAMIDE
     Indication: Acute lymphocytic leukaemia
     Dosage: 1000 MG/M2/DOSE P.I. (1 H) (DAYS 50 AND 64) CONSOLIDATION BSHORT
     Route: 065
  2. CYCLOPHOSPHAMIDE [Suspect]
     Active Substance: CYCLOPHOSPHAMIDE
     Indication: Central nervous system leukaemia
     Dosage: 1000 MG/M2/DOSE P.I. (1 H) (DAY 36) PROTOCOL II
     Route: 065
  3. CYCLOPHOSPHAMIDE [Suspect]
     Active Substance: CYCLOPHOSPHAMIDE
     Indication: Leukaemia recurrent
  4. DOXORUBICIN [Suspect]
     Active Substance: DOXORUBICIN
     Indication: Acute lymphocytic leukaemia
     Dosage: 30 MG/M2/DOSE P.I. (1 H) DAYS 8, 15, 22 AND 29 (PROTOCOL II)
     Route: 065
  5. DOXORUBICIN [Suspect]
     Active Substance: DOXORUBICIN
     Indication: Central nervous system leukaemia
  6. DOXORUBICIN [Suspect]
     Active Substance: DOXORUBICIN
     Indication: Leukaemia recurrent
  7. PREDNISOLONE [Suspect]
     Active Substance: PREDNISOLONE
     Indication: Leukaemia recurrent
     Dosage: 10 MG DAY 1 AND 6 OF WEEK 1, DAY 5 OF WEEK 3 (DIRECTLY BEFORE OR UNTIL 1 HOUR AFTER START OF THE MET
     Route: 065
  8. PREDNISOLONE [Suspect]
     Active Substance: PREDNISOLONE
     Indication: Central nervous system leukaemia
     Dosage: 10 MG DAY 1 OF WEEK 5-7 POST-INDUCTION PHASE (RELAPSE), 1ST CHEMOTHERAPY BLOCK
     Route: 065
  9. PREDNISOLONE [Suspect]
     Active Substance: PREDNISOLONE
     Indication: Acute lymphocytic leukaemia
     Dosage: 10 MG DAY 3 OF WEEK 9-10 POST-INDUCTION PHASE (RELAPSE), 2ND CHEMOTHERAPY BLOCK
     Route: 065
  10. PREDNISOLONE [Suspect]
     Active Substance: PREDNISOLONE
     Dosage: 10 MG DAY 1 OF WEEK 13, 19 AND 25 (DIRECTLY BEFORE OR UNTIL 1 HOUR AFTER START OF THE METHOTREXATE I
     Route: 065
  11. IDARUBICIN HYDROCHLORIDE [Suspect]
     Active Substance: IDARUBICIN HYDROCHLORIDE
     Indication: Leukaemia recurrent
     Dosage: 6 MG/M2 DAY 1 OF WEEK 5-8 (1ST CHEMOTHERAPY BLOCK)
     Route: 041
  12. IDARUBICIN HYDROCHLORIDE [Suspect]
     Active Substance: IDARUBICIN HYDROCHLORIDE
     Indication: Central nervous system leukaemia
  13. IDARUBICIN HYDROCHLORIDE [Suspect]
     Active Substance: IDARUBICIN HYDROCHLORIDE
     Indication: Acute lymphocytic leukaemia
  14. CYTARABINE [Suspect]
     Active Substance: CYTARABINE
     Indication: Acute lymphocytic leukaemia
     Dosage: 75 MG/M2/DOSE I.V., 2 BLOCKS OF 4 DAYS EACH (DAYS 38-41, 45-48) CONSOLIDATION A
     Route: 041
  15. CYTARABINE [Suspect]
     Active Substance: CYTARABINE
     Indication: Central nervous system leukaemia
     Dosage: 75 MG/M2/DOSE I.V., 2 BLOCKS OF 4 DAYS EACH (DAYS 52-55 AND 59-62) CONSOLIDATION BSHORT
     Route: 041
  16. CYTARABINE [Suspect]
     Active Substance: CYTARABINE
     Indication: Leukaemia recurrent
     Dosage: 75 MG/M2/DOSE I.V., 2 BLOCKS OF 4 DAYS EACH (DAYS 38-41, 45-48) PROTOCOL II
     Route: 041
  17. CYTARABINE [Suspect]
     Active Substance: CYTARABINE
     Dosage: 3 G/M2 I.V. EVERY 12 HOURS (DAY 1 AND 2 OF WEEK 3) RELAPSE THERAPY, INDUCTION PHASE
     Route: 041
  18. CYTARABINE [Suspect]
     Active Substance: CYTARABINE
     Dosage: 30 MG I.TH.(DAY 1 AND 6 OF WEEK 1, DAY 5 OF WEEK 3 (DIRECTLY BEFORE OR UNTIL 1 HOUR AFTER START OF T
     Route: 065
  19. CYTARABINE [Suspect]
     Active Substance: CYTARABINE
     Dosage: 30 MG I.TH.(DAY 1 OF WEEK 5-7) 1ST CHEMOTHERAPY BLOCK
     Route: 065
  20. CYTARABINE [Suspect]
     Active Substance: CYTARABINE
     Dosage: 75 MG/M2 I.V. DAY 3-6 OF WEEK 9 AND 10, 2ND CHEMOTHERAPY BLOCK
     Route: 041
  21. CYTARABINE [Suspect]
     Active Substance: CYTARABINE
     Dosage: 30 MG I.TH. (DAY 3 OF WEEK 9-10) 2ND CHEMOTHERAPY BLOCK
     Route: 065
  22. CYTARABINE [Suspect]
     Active Substance: CYTARABINE
     Dosage: 2 G/M2 I.V. EVERY 12 HOURS, DAY 5 OF WEEK 13, 19, AND 25, 3RD CHEMOTHERAPY BLOCK
     Route: 065
  23. CYTARABINE [Suspect]
     Active Substance: CYTARABINE
     Dosage: 30 MG I.TH., DAY 1 OF WEEK 13, 19 AND 25 (DIRECTLY BEFORE OR UNTIL 1 HOUR AFTER START OF THE METHOTR
     Route: 065
  24. DAUNORUBICIN [Suspect]
     Active Substance: DAUNORUBICIN
     Indication: Acute lymphocytic leukaemia
     Dosage: 30 MG/M2/DOSE P.I. (1 H) (DAYS 8, 15, 22 AND 29)INDUCTION PHASE
     Route: 065
  25. DAUNORUBICIN [Suspect]
     Active Substance: DAUNORUBICIN
     Indication: Central nervous system leukaemia
  26. DAUNORUBICIN [Suspect]
     Active Substance: DAUNORUBICIN
     Indication: Leukaemia recurrent
  27. DEXAMETHASONE [Suspect]
     Active Substance: DEXAMETHASONE
     Indication: Acute lymphocytic leukaemia
     Dosage: 10 MG/M2/DAY P.O. DIVIDED INTO 3 DOSES PER DAY (DAYS 1-21 (FROM DAY 22 TAPERING OVER 9 DAYS, WITH HA
     Route: 048
  28. DEXAMETHASONE [Suspect]
     Active Substance: DEXAMETHASONE
     Indication: Central nervous system leukaemia
     Dosage: 20 MG/M2 P.O. DIVIDED IN 2 DAILY DOSES (DAY 1-5 OF WEEK 1 AND 3)
     Route: 048
  29. DEXAMETHASONE [Suspect]
     Active Substance: DEXAMETHASONE
     Indication: Leukaemia recurrent
     Dosage: 6 MG/M2 P.O. DIVIDED IN 2 DAILY DOSES ON DAY 1-7 OF WEEK 5 AND 6 (TAPERING THE DOSE TO 3 MG/M? ON DA
     Route: 048
  30. DEXAMETHASONE [Suspect]
     Active Substance: DEXAMETHASONE
     Dosage: 20 MG/M2 P.O., DIVIDED IN 2 DAILY DOSES - DAY 1-5, AND 10 MG/M2 ON DAY 6 OF WEEK 13, 19 AND 25
     Route: 048
  31. MERCAPTOPURINE [Suspect]
     Active Substance: MERCAPTOPURINE
     Indication: Acute lymphocytic leukaemia
     Dosage: 60 MG/M2/DAY P.O (DAYS 36-49)CONSOLIDATION A
     Route: 048
  32. MERCAPTOPURINE [Suspect]
     Active Substance: MERCAPTOPURINE
     Indication: Central nervous system leukaemia
     Dosage: 60 MG/M2/DAY P.O (DAYS 50-63) CONSOLIDATION BSHORT
     Route: 048
  33. MERCAPTOPURINE [Suspect]
     Active Substance: MERCAPTOPURINE
     Indication: Leukaemia recurrent
     Dosage: 25 MG/M2/DAY P.O. (DAY 1-56) PROTOCOL M
     Route: 048
  34. MERCAPTOPURINE [Suspect]
     Active Substance: MERCAPTOPURINE
     Dosage: 50 MG/M2/DAY P.O., DAILY (MAINTENANCE THERAPY)
     Route: 048
  35. MERCAPTOPURINE [Suspect]
     Active Substance: MERCAPTOPURINE
     Dosage: 100 MG/M2 P.O. DAY 1-5 OF WEEK 13, 19 AND 25
     Route: 048
  36. METHOTREXATE [Suspect]
     Active Substance: METHOTREXATE
     Indication: Acute lymphocytic leukaemia
     Dosage: 10 MG I.TH (DAY 1, 12, 33) (INDUCTION PHASE)
     Route: 065
  37. METHOTREXATE [Suspect]
     Active Substance: METHOTREXATE
     Indication: Central nervous system leukaemia
     Dosage: 10 MG I.TH (DAY 45) CONSOLIDATION A
     Route: 065
  38. METHOTREXATE [Suspect]
     Active Substance: METHOTREXATE
     Indication: Leukaemia recurrent
     Dosage: 10 MG I.TH (DAY 59) CONSOLIDATION BSHORT
     Route: 065
  39. METHOTREXATE [Suspect]
     Active Substance: METHOTREXATE
     Dosage: 5000 MG/M2/DOSE P.I. (24 H) (DAYS 8, 22, 36 AND 50) (PROTOCOL M)
     Route: 065
  40. METHOTREXATE [Suspect]
     Active Substance: METHOTREXATE
     Dosage: 10 MG I.TH (DAYS 8, 22, 36 AND 50 (DURING HIGH-DOSE-MTX INFUSION)) PROTOCOL M
     Route: 065
  41. METHOTREXATE [Suspect]
     Active Substance: METHOTREXATE
     Dosage: 10 MG I.TH (DAYS 38 AND 45)PROTOCOL II
     Route: 065
  42. METHOTREXATE [Suspect]
     Active Substance: METHOTREXATE
     Dosage: 20 MG/M2/DOSE P.O.,ONCE A WEEK, (MAINTENANCE THERAPY)
     Route: 048
  43. METHOTREXATE [Suspect]
     Active Substance: METHOTREXATE
     Dosage: 1 G/M2 I.V. DAY 1 OF WEEK 1 (OVER 36 HOURS)
     Route: 042
  44. METHOTREXATE [Suspect]
     Active Substance: METHOTREXATE
     Dosage: 12 MG I.TH. (DAY 1 AND 6 OF WEEK 1, DAY 5 OF WEEK 3 (DIRECTLY BEFORE OR UNTIL 1 HOUR AFTER START OF
     Route: 065
  45. METHOTREXATE [Suspect]
     Active Substance: METHOTREXATE
     Dosage: 12 MG I.TH. (DAY 1 OF WEEK 5-7)
     Route: 065
  46. METHOTREXATE [Suspect]
     Active Substance: METHOTREXATE
     Dosage: 12 MG I.TH. (DAY 3 OF WEEK 9-10)
     Route: 065
  47. METHOTREXATE [Suspect]
     Active Substance: METHOTREXATE
     Dosage: 1 G/M2 I.V. OVER 36 HOURS STARTING, DAY 1 OF WEEK 13, 19 AND 25
     Route: 042
  48. METHOTREXATE [Suspect]
     Active Substance: METHOTREXATE
     Dosage: 12 MG I.TH, DAY 1 OF WEEK 13, 19 AND 25 (DIRECTLY BEFORE OR UNTIL 1 HOUR AFTER START OF THE METHOTRE
     Route: 065
  49. PEGASPARGASE [Suspect]
     Active Substance: PEGASPARGASE
     Indication: Acute lymphocytic leukaemia
     Dosage: 2500 IU/M2/DOSE P.I. (2 H) (DAYS 12 AND 26)INDUCTION PHASE
     Route: 065
  50. PEGASPARGASE [Suspect]
     Active Substance: PEGASPARGASE
     Indication: Central nervous system leukaemia
     Dosage: 2500 IU/M2/DOSE P.I. (2 H), DAY 8
     Route: 065
  51. PEGASPARGASE [Suspect]
     Active Substance: PEGASPARGASE
     Indication: Leukaemia recurrent
     Dosage: 1000 IU/M2 I.V., DAY 4 OF WEEK 1, DAY 4 OF WEEK 3 (RELAPSE THERAPY)
     Route: 041
  52. PEGASPARGASE [Suspect]
     Active Substance: PEGASPARGASE
     Dosage: 1000 IU/M2 I.V. (DAY 1 OF WEEK 5, DAY 4 OF WEEK 6)
     Route: 041
  53. PEGASPARGASE [Suspect]
     Active Substance: PEGASPARGASE
     Dosage: 1000 IU/M2 I.V., DAY 6 OF WEEK 13, 19 AND 25
     Route: 041
  54. PREDNISONE [Suspect]
     Active Substance: PREDNISONE
     Indication: Acute lymphocytic leukaemia
     Dosage: 60 MG/M2/DAY P.O. DIVIDED INTO 3 DOSES PER DAY (DAYS 1-28 (FROM DAY 29, TAPERING OVER 9 DAYS WITH HA
     Route: 048
  55. PREDNISONE [Suspect]
     Active Substance: PREDNISONE
     Indication: Central nervous system leukaemia
  56. PREDNISONE [Suspect]
     Active Substance: PREDNISONE
     Indication: Leukaemia recurrent
  57. THIOGUANINE [Suspect]
     Active Substance: THIOGUANINE
     Indication: Acute lymphocytic leukaemia
     Dosage: 60 MG/M2/DAY P.O (DAYS 36-49)
     Route: 048
  58. THIOGUANINE [Suspect]
     Active Substance: THIOGUANINE
     Indication: Central nervous system leukaemia
     Dosage: 60 MG/M2 P.O. (DAY 1-7 OF WEEK 9 AND 10)
     Route: 048
  59. THIOGUANINE [Suspect]
     Active Substance: THIOGUANINE
     Indication: Leukaemia recurrent
  60. VINCRISTINE [Suspect]
     Active Substance: VINCRISTINE
     Indication: Acute lymphocytic leukaemia
     Dosage: 1.5 MG/M2/DOSE I.V. (DAYS 8, 15, 22, 29)INDUCTION PHASE
     Route: 041
  61. VINCRISTINE [Suspect]
     Active Substance: VINCRISTINE
     Indication: Central nervous system leukaemia
     Dosage: 1.5 MG/M2/DOSE I.V. (DAYS 8, 15, 22 AND 29)
     Route: 041
  62. VINCRISTINE [Suspect]
     Active Substance: VINCRISTINE
     Indication: Leukaemia recurrent
     Dosage: 1.5 MG/M2/DOSE (DAY 1 AND 6 OF WEEK 1, DAY 1 OF WEEK 3)
     Route: 065
  63. VINCRISTINE [Suspect]
     Active Substance: VINCRISTINE
     Dosage: 1.5 MG/M2/DOSE I.V. (DAY 1 OF WEEK 5-8)
     Route: 041
  64. VINCRISTINE [Suspect]
     Active Substance: VINCRISTINE
     Dosage: 1.5 MG/M2/DOSE, DAY 1 AND 6 OF WEEK 13, 19 AND 25
     Route: 065

REACTIONS (20)
  - Fournier^s gangrene [Recovered/Resolved]
  - Pseudomonas infection [Recovered/Resolved]
  - Lactic acidosis [Unknown]
  - Bronchopulmonary aspergillosis [Recovered/Resolved]
  - Neutropenia [Unknown]
  - Disease recurrence [Recovered/Resolved]
  - Hepatomegaly [Unknown]
  - Multiple organ dysfunction syndrome [Unknown]
  - Pyrexia [Unknown]
  - General physical health deterioration [Unknown]
  - Respiratory failure [Unknown]
  - Tachypnoea [Unknown]
  - Hypopnoea [Unknown]
  - Oxygen saturation decreased [Unknown]
  - Circulatory collapse [Unknown]
  - Tachycardia [Unknown]
  - Skin lesion [Unknown]
  - Swelling [Unknown]
  - Pain [Unknown]
  - Wound [Unknown]
